FAERS Safety Report 21621488 (Version 1)
Quarter: 2022Q4

REPORT INFORMATION
  Report Type: Spontaneous
  Country: US (occurrence: None)
  Receive Date: 20221118
  Receipt Date: 20221118
  Transmission Date: 20230113
  Serious: Yes (Death)
  Sender: FDA-Public Use
  Company Number: None

PATIENT
  Age: 61 Year
  Sex: Male
  Weight: 137 kg

DRUGS (8)
  1. HEMLIBRA [Suspect]
     Active Substance: EMICIZUMAB-KXWH
     Indication: Von Willebrand^s disease
     Dosage: OTHER FREQUENCY : WEEKLY X4 WEEKS;?
     Route: 058
     Dates: start: 20221017, end: 20221110
  2. Cyclobenzaprine 5 mg TID [Concomitant]
  3. Buspirone 5 mg daily [Concomitant]
  4. Wellbutrin XL 150 mg daily [Concomitant]
  5. Levemir 50 units BID [Concomitant]
  6. Cardizem 240 mg daily [Concomitant]
  7. Januvia 100 mg daily [Concomitant]
  8. Lexapro 20 mg daily [Concomitant]

REACTIONS (8)
  - Unresponsive to stimuli [None]
  - Dizziness [None]
  - Dizziness [None]
  - Fatigue [None]
  - Cough [None]
  - Pleural thickening [None]
  - Nasal congestion [None]
  - Dyspnoea [None]

NARRATIVE: CASE EVENT DATE: 20221110
